FAERS Safety Report 14362079 (Version 2)
Quarter: 2018Q2

REPORT INFORMATION
  Report Type: Spontaneous
  Country: FR (occurrence: FR)
  Receive Date: 20180108
  Receipt Date: 20180505
  Transmission Date: 20180711
  Serious: Yes (Life-Threatening)
  Sender: FDA-Public Use
  Company Number: FR-ROCHE-2049557

PATIENT
  Age: 13 Year
  Sex: Female
  Weight: 35 kg

DRUGS (12)
  1. CYTARABINE SANDOZ [Suspect]
     Active Substance: CYTARABINE
     Indication: B-CELL LYMPHOMA
     Dosage: MOST RECENT DOSE ON 24/OCT/2017?100 MG/ML
     Route: 041
     Dates: start: 20171003
  2. MABTHERA [Suspect]
     Active Substance: RITUXIMAB
     Indication: B-CELL LYMPHOMA
     Dosage: MOST RECENT DOSE ON 20/OCT/2017
     Route: 041
     Dates: start: 20170807
  3. ETOPOSIDE MYLAN [Suspect]
     Active Substance: ETOPOSIDE
     Indication: B-CELL LYMPHOMA
     Dosage: MOST RECENT DOSE ON 24/OCT/2017
     Route: 041
     Dates: start: 20171003
  4. HYDROCORTISONE. [Suspect]
     Active Substance: HYDROCORTISONE
     Indication: B-CELL LYMPHOMA
     Dosage: MOST RECENT DOSE ON 20/OCT/2017
     Route: 037
     Dates: start: 20170803
  5. PREDNISOLONE. [Concomitant]
     Active Substance: PREDNISOLONE
     Indication: B-CELL LYMPHOMA
     Route: 048
     Dates: start: 20170802, end: 20170907
  6. VINCRISTINE [Concomitant]
     Active Substance: VINCRISTINE
     Indication: B-CELL LYMPHOMA
     Route: 041
     Dates: start: 20170802, end: 20170831
  7. DOXORUBICINE [Concomitant]
     Active Substance: DOXORUBICIN
     Indication: B-CELL LYMPHOMA
     Dosage: MOST RECENT DOSE ON 01/SEP/2017
     Route: 041
     Dates: start: 20171010
  8. KALINOX [Suspect]
     Active Substance: NITROUS OXIDE
     Indication: ANALGESIC THERAPY
     Dosage: MOST RECENT DOSE ON 20/OCT/2017
     Route: 055
     Dates: start: 20170803
  9. LEDERTREXATE [Suspect]
     Active Substance: METHOTREXATE
     Indication: B-CELL LYMPHOMA
     Dosage: MOST RECENT DOSE ON 20/OCT/2017
     Route: 037
     Dates: start: 20170803
  10. ENDOXAN [Concomitant]
     Active Substance: CYCLOPHOSPHAMIDE
     Indication: B-CELL LYMPHOMA
     Route: 041
     Dates: start: 20170802, end: 20170903
  11. CYTARABINE SANDOZ [Suspect]
     Active Substance: CYTARABINE
     Dosage: MOST RECENT DOSE ON 03/OCT/2017
     Route: 037
     Dates: start: 20170802
  12. METHOTREXATE. [Suspect]
     Active Substance: METHOTREXATE
     Indication: B-CELL LYMPHOMA
     Dosage: MOST RECENT DOSE ON 31/AUG/2017
     Route: 041
     Dates: start: 20170809

REACTIONS (2)
  - Paraplegia [Recovered/Resolved with Sequelae]
  - Myelitis [Recovered/Resolved with Sequelae]

NARRATIVE: CASE EVENT DATE: 201711
